FAERS Safety Report 10402791 (Version 2)
Quarter: 2014Q3

REPORT INFORMATION
  Report Type: Report from Study
  Country: AR (occurrence: AR)
  Receive Date: 20140822
  Receipt Date: 20140822
  Transmission Date: 20150326
  Serious: Yes (Other)
  Sender: FDA-Public Use
  Company Number: AR-ABBVIE-14P-007-1252522-00

PATIENT
  Sex: Female

DRUGS (1)
  1. HUMIRA [Suspect]
     Active Substance: ADALIMUMAB
     Indication: CROHN^S DISEASE
     Route: 058
     Dates: start: 20130717

REACTIONS (4)
  - Pulmonary mass [Not Recovered/Not Resolved]
  - Dyspnoea [Unknown]
  - Thyroid disorder [Recovering/Resolving]
  - Dysphagia [Unknown]
